FAERS Safety Report 9679948 (Version 1)
Quarter: 2013Q4

REPORT INFORMATION
  Report Type: Spontaneous
  Country: US (occurrence: US)
  Receive Date: 20131110
  Receipt Date: 20131110
  Transmission Date: 20140711
  Serious: Yes (Other)
  Sender: FDA-Public Use
  Company Number: US-TEVA-443065USA

PATIENT
  Age: 47 Year
  Sex: Female

DRUGS (1)
  1. NUVIGIL [Suspect]
     Indication: CIRCADIAN RHYTHM SLEEP DISORDER
     Dates: start: 201201

REACTIONS (2)
  - Throat tightness [Recovered/Resolved]
  - Rash [Recovered/Resolved]
